FAERS Safety Report 19219164 (Version 1)
Quarter: 2021Q2

REPORT INFORMATION
  Report Type: Spontaneous
  Country: US (occurrence: US)
  Receive Date: 20210506
  Receipt Date: 20210506
  Transmission Date: 20210717
  Serious: No
  Sender: FDA-Public Use
  Company Number: US-ROCHE-2612759

PATIENT
  Sex: Female

DRUGS (10)
  1. COENZYME Q10 [Concomitant]
     Active Substance: DIETARY SUPPLEMENT\UBIDECARENONE
     Route: 048
  2. GLUCOSAMINE [Concomitant]
     Active Substance: GLUCOSAMINE
     Route: 048
  3. LEVOTHYROXIN [Concomitant]
     Active Substance: LEVOTHYROXINE
     Route: 048
  4. BENZONATATE. [Concomitant]
     Active Substance: BENZONATATE
     Route: 048
  5. PREDNISONE. [Concomitant]
     Active Substance: PREDNISONE
     Route: 048
  6. ESBRIET [Suspect]
     Active Substance: PIRFENIDONE
     Indication: IDIOPATHIC PULMONARY FIBROSIS
     Route: 048
  7. OSCAL [CALCIUM CARBONATE] [Concomitant]
  8. PRAVASTATIN. [Concomitant]
     Active Substance: PRAVASTATIN
     Route: 048
  9. PROAIR HFA [Concomitant]
     Active Substance: ALBUTEROL SULFATE
  10. MYRBETRIQ [Concomitant]
     Active Substance: MIRABEGRON
     Route: 048

REACTIONS (2)
  - No adverse event [Unknown]
  - Product dose omission issue [Unknown]
